FAERS Safety Report 16418766 (Version 1)
Quarter: 2019Q2

REPORT INFORMATION
  Report Type: Spontaneous
  Country: FR (occurrence: FR)
  Receive Date: 20190612
  Receipt Date: 20190612
  Transmission Date: 20190711
  Serious: Yes (Hospitalization)
  Sender: FDA-Public Use
  Company Number: FR-ROCHE-2334975

PATIENT
  Age: 26 Year
  Sex: Female
  Weight: 71 kg

DRUGS (3)
  1. DAFALGAN CODEINE [Suspect]
     Active Substance: ACETAMINOPHEN\CODEINE PHOSPHATE
     Indication: TOXICITY TO VARIOUS AGENTS
     Route: 048
     Dates: start: 20190521, end: 20190521
  2. VALIUM [Suspect]
     Active Substance: DIAZEPAM
     Indication: TOXICITY TO VARIOUS AGENTS
     Route: 048
     Dates: start: 20190521, end: 20190521
  3. THERALENE [Suspect]
     Active Substance: TRIMEPRAZINE
     Indication: TOXICITY TO VARIOUS AGENTS
     Route: 048
     Dates: start: 20190521, end: 20190521

REACTIONS (3)
  - Toxicity to various agents [Recovered/Resolved]
  - Somnolence [Recovered/Resolved]
  - Hypotension [Recovered/Resolved]

NARRATIVE: CASE EVENT DATE: 20190521
